FAERS Safety Report 5159962-X (Version None)
Quarter: 2006Q4

REPORT INFORMATION
  Report Type: 
  Country: None (occurrence: None)
  Receive Date: 20061117
  Receipt Date: 20061109
  Transmission Date: 20070319
  Serious: Yes (Life-Threatening, Hospitalization)
  Sender: FDA-Public Use
  Company Number: 228533

PATIENT
  Age: 39 Year
  Sex: Female

DRUGS (3)
  1. XOLAIR [Suspect]
     Indication: ASTHMA
     Dosage: 300 MG, Q4W SUBCUTANEOUS
     Route: 058
     Dates: start: 20060808, end: 20060808
  2. TRILEPTAL [Concomitant]
  3. STEROIDS - UNKNOWN TYPES (STEROID NOS) [Concomitant]

REACTIONS (15)
  - BLOOD BICARBONATE DECREASED [None]
  - BRONCHOSPASM [None]
  - CARDIO-RESPIRATORY ARREST [None]
  - CONDITION AGGRAVATED [None]
  - CONVERSION DISORDER [None]
  - DISORIENTATION [None]
  - DIZZINESS [None]
  - DRUG LEVEL DECREASED [None]
  - ENCEPHALOPATHY [None]
  - FALL [None]
  - GRAND MAL CONVULSION [None]
  - LARYNGOSPASM [None]
  - PCO2 INCREASED [None]
  - PO2 INCREASED [None]
  - SEDATION [None]
